FAERS Safety Report 9090195 (Version 3)
Quarter: 2013Q3

REPORT INFORMATION
  Report Type: Report from Study
  Country: JP (occurrence: JP)
  Receive Date: 20130131
  Receipt Date: 20130718
  Transmission Date: 20140515
  Serious: Yes (Hospitalization)
  Sender: FDA-Public Use
  Company Number: JP-AMGEN-JPNCT2013006819

PATIENT
  Age: 72 Year
  Sex: Male
  Weight: 60 kg

DRUGS (16)
  1. ROMIPLOSTIM - KHK [Suspect]
     Indication: IMMUNE THROMBOCYTOPENIC PURPURA
     Dosage: 7 MUG/KG, QWK
     Route: 058
     Dates: start: 20110523
  2. ROMIPLOSTIM - KHK [Suspect]
     Dosage: 7 MUG/KG, QWK
     Route: 058
     Dates: start: 20130107
  3. ROMIPLOSTIM - KHK [Suspect]
     Dosage: 7 MUG/KG, QD
     Route: 058
     Dates: start: 20130308
  4. ROMIPLOSTIM - KHK [Suspect]
     Dosage: 7 MUG/KG, QWK
     Route: 058
     Dates: start: 20130318
  5. VOLTAREN [Suspect]
     Indication: ARTHRALGIA
     Dosage: UNK
     Route: 048
  6. LOXONIN [Suspect]
     Indication: TRICHIASIS
     Dosage: UNK
     Route: 048
  7. PREDNISOLONE [Concomitant]
     Indication: IMMUNE THROMBOCYTOPENIC PURPURA
     Dosage: 3 MG, QD
     Route: 048
     Dates: start: 20110405
  8. BIOFERMIN [Concomitant]
     Indication: CONSTIPATION
     Dosage: UNK
     Route: 048
  9. BONALON [Concomitant]
     Indication: PROPHYLAXIS
     Dosage: 5 MG, UNK
     Route: 048
  10. SELBEX [Concomitant]
     Indication: GASTRITIS
     Dosage: UNK
     Route: 048
  11. MAGLAX [Concomitant]
     Indication: CONSTIPATION
     Dosage: UNK
     Route: 048
  12. FLIVAS [Concomitant]
     Indication: BENIGN PROSTATIC HYPERPLASIA
     Dosage: UNK
     Route: 048
  13. FASTIC [Concomitant]
     Indication: DIABETES MELLITUS
     Dosage: UNK
     Route: 048
  14. LIPITOR [Concomitant]
     Indication: DYSLIPIDAEMIA
     Dosage: UNK
     Route: 048
  15. TAKEPRON [Concomitant]
     Indication: GASTRITIS
     Dosage: UNK
     Route: 048
  16. GASTER D [Concomitant]
     Indication: GASTRITIS
     Dosage: UNK
     Route: 048

REACTIONS (10)
  - Deep vein thrombosis [Recovering/Resolving]
  - Joint arthroplasty [Recovered/Resolved]
  - Bronchitis [Recovering/Resolving]
  - Gastritis [Not Recovered/Not Resolved]
  - Hypoaesthesia [Not Recovered/Not Resolved]
  - Urticaria [Recovered/Resolved]
  - Renal impairment [Recovering/Resolving]
  - White blood cell count increased [Not Recovered/Not Resolved]
  - Upper respiratory tract inflammation [Recovering/Resolving]
  - Arthralgia [Recovering/Resolving]
